FAERS Safety Report 10084942 (Version 1)
Quarter: 2014Q2

REPORT INFORMATION
  Report Type: Spontaneous
  Country: US (occurrence: US)
  Receive Date: 20140417
  Receipt Date: 20140417
  Transmission Date: 20141212
  Serious: Yes (Other)
  Sender: FDA-Public Use
  Company Number: US-PFIZER INC-2014107164

PATIENT
  Age: 52 Year
  Sex: Female
  Weight: 113.38 kg

DRUGS (2)
  1. DILANTIN-125 [Suspect]
     Indication: GENERALISED TONIC-CLONIC SEIZURE
     Dosage: 500 MG (AT BEDTIME), DAILY
     Dates: start: 20030130
  2. ALEVE [Concomitant]
     Indication: OSTEOARTHRITIS
     Dosage: UNK

REACTIONS (1)
  - Transient ischaemic attack [Unknown]
